FAERS Safety Report 4619026-8 (Version None)
Quarter: 2005Q1

REPORT INFORMATION
  Report Type: 
  Country: None (occurrence: None)
  Receive Date: 20050317
  Receipt Date: 20050317
  Transmission Date: 20050727
  Serious: No
  Sender: FDA-Public Use
  Company Number: None

PATIENT

DRUGS (1)
  1. SIRDALUD -TIZANIDINE- [Suspect]

REACTIONS (9)
  - BLOOD PRESSURE SYSTOLIC DECREASED [None]
  - DIZZINESS [None]
  - DRUG EFFECT INCREASED [None]
  - DRUG INTERACTION [None]
  - DRUG INTERACTION INHIBITION [None]
  - DRUG LEVEL INCREASED [None]
  - HYPOTENSION [None]
  - NERVOUS SYSTEM DISORDER [None]
  - SOMNOLENCE [None]
